FAERS Safety Report 7197467-5 (Version None)
Quarter: 2010Q4

REPORT INFORMATION
  Report Type: 
  Country: None (occurrence: None)
  Receive Date: 20101227
  Receipt Date: 20101223
  Transmission Date: 20110411
  Serious: Yes (Hospitalization)
  Sender: FDA-Public Use
  Company Number: IT-BRISTOL-MYERS SQUIBB COMPANY-15457997

PATIENT
  Age: 68 Year
  Sex: Female

DRUGS (5)
  1. COUMADIN [Suspect]
     Dosage: SUSPENDED ON 11-SEP-2010; 1 DOSAGE FORM DIE
     Route: 048
     Dates: start: 19901115
  2. PRAVASELECT [Suspect]
  3. CARDICOR [Suspect]
  4. AROMASIN [Suspect]
  5. ENAPREN [Suspect]

REACTIONS (1)
  - GASTROINTESTINAL HAEMORRHAGE [None]
